FAERS Safety Report 6021854-1 (Version None)
Quarter: 2008Q4

REPORT INFORMATION
  Report Type: 
  Country: None (occurrence: None)
  Receive Date: 20081229
  Receipt Date: 20081218
  Transmission Date: 20090506
  Serious: Yes (Hospitalization)
  Sender: FDA-Public Use
  Company Number: US-ROCHE-604041

PATIENT
  Sex: Female

DRUGS (2)
  1. PEG-INTERFERON A-2A (RO 25-8310) [Suspect]
     Indication: HEPATITIS C
     Route: 065
     Dates: start: 20080303
  2. RIBAPAK [Suspect]
     Indication: HEPATITIS C
     Route: 065
     Dates: start: 20080303

REACTIONS (2)
  - OOPHORECTOMY [None]
  - SINUSITIS [None]
